FAERS Safety Report 9348715 (Version 1)
Quarter: 2013Q2

REPORT INFORMATION
  Report Type: Spontaneous
  Country: US (occurrence: US)
  Receive Date: 20130614
  Receipt Date: 20130614
  Transmission Date: 20140414
  Serious: No
  Sender: FDA-Public Use
  Company Number: US-GLAXOSMITHKLINE-A0986551A

PATIENT
  Age: 46 Year
  Sex: Female

DRUGS (3)
  1. TREXIMET [Suspect]
     Indication: MIGRAINE
     Dosage: 1TAB AS REQUIRED
     Route: 048
     Dates: start: 201107
  2. VITAMIN B2 [Concomitant]
  3. FEVERFEW [Concomitant]

REACTIONS (2)
  - Burning sensation [Not Recovered/Not Resolved]
  - Burning sensation [Unknown]
